FAERS Safety Report 5023604-4 (Version None)
Quarter: 2006Q2

REPORT INFORMATION
  Report Type: 
  Country: None (occurrence: None)
  Receive Date: 20060606
  Receipt Date: 20060524
  Transmission Date: 20061013
  Serious: Yes (Death, Other)
  Sender: FDA-Public Use
  Company Number: 2006-01284

PATIENT
  Sex: Female

DRUGS (1)
  1. VELCADE [Suspect]
     Indication: MULTIPLE MYELOMA
     Dates: start: 20040901

REACTIONS (4)
  - CONSTIPATION [None]
  - DISEASE PROGRESSION [None]
  - LABORATORY TEST ABNORMAL [None]
  - ORTHOSTATIC HYPOTENSION [None]
